FAERS Safety Report 6134881-0 (Version None)
Quarter: 2009Q1

REPORT INFORMATION
  Report Type: 
  Country: None (occurrence: None)
  Receive Date: 20090327
  Receipt Date: 20090317
  Transmission Date: 20090719
  Serious: Yes (Other)
  Sender: FDA-Public Use
  Company Number: US-PFIZER INC-2009184260

PATIENT

DRUGS (2)
  1. NEURONTIN [Suspect]
     Indication: CONVULSION
     Dosage: UNK
     Dates: start: 20000101, end: 20000101
  2. DEPAKOTE [Suspect]
     Indication: CONVULSION
     Dosage: UNK
     Dates: start: 20000101, end: 20000101

REACTIONS (1)
  - CATATONIA [None]
